FAERS Safety Report 7128915-4 (Version None)
Quarter: 2010Q4

REPORT INFORMATION
  Report Type: 
  Country: None (occurrence: None)
  Receive Date: 20101130
  Receipt Date: 20101119
  Transmission Date: 20110411
  Serious: Yes (Other)
  Sender: FDA-Public Use
  Company Number: A0896528A

PATIENT
  Age: 46 Year
  Sex: Female

DRUGS (3)
  1. PROMACTA [Suspect]
     Dates: start: 20100610, end: 20100819
  2. CORTICOSTEROIDS [Concomitant]
  3. PLATELETS [Concomitant]

REACTIONS (2)
  - HEADACHE [None]
  - HYPOGLYCAEMIA [None]
